FAERS Safety Report 17367441 (Version 1)
Quarter: 2020Q1

REPORT INFORMATION
  Report Type: Spontaneous
  Country: US (occurrence: US)
  Receive Date: 20200203
  Receipt Date: 20200203
  Transmission Date: 20200409
  Serious: Yes (Hospitalization)
  Sender: FDA-Public Use
  Company Number: None

PATIENT
  Age: 66 Year
  Sex: Female

DRUGS (4)
  1. MIDODRINE [Concomitant]
     Active Substance: MIDODRINE
  2. CINACALET [Suspect]
     Active Substance: CINACALCET
     Indication: HYPERPARATHYROIDISM SECONDARY
     Route: 048
     Dates: start: 20190509
  3. PROCRIT [Concomitant]
     Active Substance: ERYTHROPOIETIN
  4. ACCU CHEK [Concomitant]

REACTIONS (3)
  - Hospitalisation [None]
  - Seizure [None]
  - Therapy cessation [None]
